FAERS Safety Report 9269304 (Version 4)
Quarter: 2013Q3

REPORT INFORMATION
  Report Type: Spontaneous
  Country: US (occurrence: US)
  Receive Date: 20130503
  Receipt Date: 20130917
  Transmission Date: 20140515
  Serious: Yes (Other)
  Sender: FDA-Public Use
  Company Number: US-BAYER-2013-054297

PATIENT
  Age: 38 Year
  Sex: Female
  Weight: 60.77 kg

DRUGS (7)
  1. MIRENA [Suspect]
     Indication: CONTRACEPTION
     Dosage: 20 MCG/24HR, CONT
     Route: 015
     Dates: start: 20120919
  2. MIRENA [Suspect]
     Indication: MENORRHAGIA
  3. ADVAIR DISKUS [Concomitant]
  4. LEXAPRO [Concomitant]
  5. SERVENT [Concomitant]
  6. PRENATAL VITAMINS [VIT C,B5,B12,D2,B3,B6,RETINOL PALMIT,B2,B1 MONO [Concomitant]
  7. ZOFRAN [Concomitant]

REACTIONS (5)
  - Uterine perforation [Not Recovered/Not Resolved]
  - Pregnancy with contraceptive device [Not Recovered/Not Resolved]
  - Drug ineffective [None]
  - Feeling abnormal [Not Recovered/Not Resolved]
  - Menstruation irregular [None]
